FAERS Safety Report 9573204 (Version 2)
Quarter: 2013Q4

REPORT INFORMATION
  Report Type: Report from Study
  Country: CN (occurrence: CN)
  Receive Date: 20131001
  Receipt Date: 20131110
  Transmission Date: 20140711
  Serious: Yes (Other)
  Sender: FDA-Public Use
  Company Number: CN-US-EMD SERONO, INC.-7239586

PATIENT
  Age: 31 Year
  Sex: Female

DRUGS (1)
  1. GONAL-F [Suspect]
     Indication: OVULATION INDUCTION
     Route: 058
     Dates: start: 20130924, end: 201310

REACTIONS (1)
  - Vaginal haemorrhage [Recovered/Resolved]
